FAERS Safety Report 6379618-5 (Version None)
Quarter: 2009Q3

REPORT INFORMATION
  Report Type: 
  Country: None (occurrence: None)
  Receive Date: 20090928
  Receipt Date: 20090921
  Transmission Date: 20100115
  Serious: Yes (Other)
  Sender: FDA-Public Use
  Company Number: DE-ALLERGAN-0910276US

PATIENT
  Age: 68 Year
  Sex: Female

DRUGS (3)
  1. BOTOX [Suspect]
     Indication: MUSCLE SPASTICITY
     Dosage: UNK, SINGLE
     Route: 030
     Dates: start: 20090601, end: 20090601
  2. BOTOX [Suspect]
     Dosage: UNK, SINGLE
     Route: 030
  3. ASPIRIN [Concomitant]
     Indication: DRUG USE FOR UNKNOWN INDICATION

REACTIONS (3)
  - HYPOTENSION [None]
  - PALLOR [None]
  - SOMNOLENCE [None]
